FAERS Safety Report 5282908-0 (Version None)
Quarter: 2007Q1

REPORT INFORMATION
  Report Type: 
  Country: None (occurrence: None)
  Receive Date: 20070328
  Receipt Date: 20070328
  Transmission Date: 20070707
  Serious: Yes (Other)
  Sender: FDA-Public Use
  Company Number: None

PATIENT
  Age: 65 Year
  Sex: Female
  Weight: 61.2356 kg

DRUGS (2)
  1. CITALOPRAM HYDROBROMIDE [Suspect]
     Indication: ANXIETY
     Dosage: 40MG ONCE A DAY
     Dates: start: 20070218, end: 20070312
  2. CITALOPRAM HYDROBROMIDE [Suspect]
     Indication: DEPRESSION
     Dosage: 40MG ONCE A DAY
     Dates: start: 20070218, end: 20070312

REACTIONS (4)
  - ANGER [None]
  - DISTURBANCE IN SOCIAL BEHAVIOUR [None]
  - INSOMNIA [None]
  - PHARMACEUTICAL PRODUCT COMPLAINT [None]
